FAERS Safety Report 12375191 (Version 1)
Quarter: 2016Q2

REPORT INFORMATION
  Report Type: Spontaneous
  Country: US (occurrence: None)
  Receive Date: 20160516
  Receipt Date: 20160516
  Transmission Date: 20160815
  Serious: Yes (Hospitalization)
  Sender: FDA-Public Use
  Company Number: None

PATIENT
  Age: 66 Year
  Sex: Male
  Weight: 85.9 kg

DRUGS (1)
  1. LISINOPRIL. [Suspect]
     Active Substance: LISINOPRIL
     Dosage: MG EVERY DAY PO
     Route: 048
     Dates: start: 20151114

REACTIONS (3)
  - Headache [None]
  - Cough [None]
  - Vision blurred [None]

NARRATIVE: CASE EVENT DATE: 20151114
